FAERS Safety Report 23989783 (Version 1)
Quarter: 2024Q2

REPORT INFORMATION
  Report Type: Spontaneous
  Country: FR (occurrence: FR)
  Receive Date: 20240619
  Receipt Date: 20240619
  Transmission Date: 20240715
  Serious: Yes (Hospitalization)
  Sender: FDA-Public Use
  Company Number: None

PATIENT
  Age: 66 Year
  Sex: Female

DRUGS (5)
  1. AZITHROMYCIN [Suspect]
     Active Substance: AZITHROMYCIN
     Indication: Tonsillitis
     Dosage: 500 MG, 1X/DAY FOR 3 DAYS
     Route: 048
     Dates: start: 20240523, end: 20240525
  2. BICLOTYMOL [Suspect]
     Active Substance: BICLOTYMOL
     Indication: Tonsillitis
     Dosage: UNK
     Route: 048
     Dates: start: 20240523
  3. MELATONIN [Suspect]
     Active Substance: MELATONIN
     Dosage: UNK
     Route: 048
     Dates: start: 20240523
  4. ACETAMINOPHEN [Suspect]
     Active Substance: ACETAMINOPHEN
     Indication: Tonsillitis
     Dosage: UNK
     Route: 048
     Dates: start: 20240523
  5. SACCHAROMYCES CEREVISIAE\SODIUM SULFATE [Suspect]
     Active Substance: SACCHAROMYCES CEREVISIAE\SODIUM SULFATE
     Indication: Tonsillitis
     Dosage: UNK
     Route: 048
     Dates: start: 20240523

REACTIONS (2)
  - Rash maculo-papular [Not Recovered/Not Resolved]
  - Off label use [Unknown]

NARRATIVE: CASE EVENT DATE: 20240523
